FAERS Safety Report 20722641 (Version 1)
Quarter: 2022Q2

REPORT INFORMATION
  Report Type: Spontaneous
  Country: US (occurrence: US)
  Receive Date: 20220419
  Receipt Date: 20220419
  Transmission Date: 20220721
  Serious: Yes (Hospitalization, Other)
  Sender: FDA-Public Use
  Company Number: US-ALKEM LABORATORIES LIMITED-US-ALKEM-2022-03466

PATIENT
  Age: 15 Month
  Sex: Female

DRUGS (2)
  1. LIDOCAINE [Suspect]
     Active Substance: LIDOCAINE
     Indication: Product used for unknown indication
     Dosage: 30 G TUBE OF 2.5 PERCENT
     Route: 065
  2. PRILOCAINE [Suspect]
     Active Substance: PRILOCAINE
     Indication: Product used for unknown indication
     Dosage: 30 G TUBE OF 2.5 PERCENT
     Route: 065

REACTIONS (5)
  - Local anaesthetic systemic toxicity [Recovered/Resolved]
  - Status epilepticus [Unknown]
  - Respiratory failure [Unknown]
  - Generalised tonic-clonic seizure [Recovered/Resolved]
  - Accidental exposure to product by child [Recovered/Resolved]
